FAERS Safety Report 4662804-X (Version None)
Quarter: 2005Q2

REPORT INFORMATION
  Report Type: 
  Country: None (occurrence: None)
  Receive Date: 20050512
  Receipt Date: 20050428
  Transmission Date: 20051028
  Serious: Yes (Hospitalization)
  Sender: FDA-Public Use
  Company Number: FR_050105688

PATIENT
  Age: 85 Year
  Sex: Male

DRUGS (5)
  1. ZYPREXA [Suspect]
     Dosage: 5 MG/1 DAY
     Dates: end: 20041015
  2. LORAZEPAM [Concomitant]
  3. ALLOPURINOL [Concomitant]
  4. PLAVIX [Concomitant]
  5. IVERMECTIN [Concomitant]

REACTIONS (9)
  - BLOOD ALKALINE PHOSPHATASE INCREASED [None]
  - CEREBRAL ATROPHY [None]
  - CREUTZFELDT-JAKOB DISEASE [None]
  - DISORIENTATION [None]
  - DYSPROSODY [None]
  - ELECTROENCEPHALOGRAM ABNORMAL [None]
  - ENCEPHALOPATHY [None]
  - EOSINOPHILIA [None]
  - MYOCLONUS [None]
